FAERS Safety Report 20608556 (Version 1)
Quarter: 2022Q1

REPORT INFORMATION
  Report Type: Spontaneous
  Country: JP (occurrence: JP)
  Receive Date: 20220317
  Receipt Date: 20220317
  Transmission Date: 20220423
  Serious: Yes (Other)
  Sender: FDA-Public Use
  Company Number: JP-PURDUE-USA-2022-0291929

PATIENT

DRUGS (1)
  1. FENOFIBRATE [Suspect]
     Active Substance: FENOFIBRATE
     Indication: Product used for unknown indication
     Dosage: UNKNOWN
     Route: 065

REACTIONS (9)
  - Renal impairment [Unknown]
  - Nasopharyngitis [Unknown]
  - Pruritus [Unknown]
  - Dizziness [Unknown]
  - Blood pressure increased [Unknown]
  - Myalgia [Unknown]
  - Cough [Unknown]
  - Hypoaesthesia [Unknown]
  - Hepatic function abnormal [Unknown]
